FAERS Safety Report 5804132-2 (Version None)
Quarter: 2008Q3

REPORT INFORMATION
  Report Type: 
  Country: None (occurrence: None)
  Receive Date: 20080707
  Receipt Date: 20080707
  Transmission Date: 20090109
  Serious: Yes (Life-Threatening, Other)
  Sender: FDA-Public Use
  Company Number: None

PATIENT
  Age: 33 Year
  Sex: Female
  Weight: 60.782 kg

DRUGS (1)
  1. YAZ [Suspect]
     Indication: OVARIAN DISORDER
     Dosage: 1 PILL PER DAY PO
     Route: 048
     Dates: start: 20080619, end: 20080705

REACTIONS (3)
  - ANXIETY [None]
  - DEPRESSION [None]
  - FEAR [None]
